FAERS Safety Report 5317735-9 (Version None)
Quarter: 2007Q2

REPORT INFORMATION
  Report Type: 
  Country: None (occurrence: None)
  Receive Date: 20070507
  Receipt Date: 20070423
  Transmission Date: 20071010
  Serious: Yes (Disabling, Other)
  Sender: FDA-Public Use
  Company Number: GB-AMGEN-US217281

PATIENT
  Sex: Female

DRUGS (10)
  1. ENBREL [Suspect]
     Indication: PSORIATIC ARTHROPATHY
     Route: 058
     Dates: start: 20050610, end: 20070307
  2. ENBREL [Suspect]
     Indication: POLYARTHRITIS
  3. PARACETAMOL [Concomitant]
     Indication: ANALGESIC EFFECT
     Route: 048
  4. DICLOFENAC [Concomitant]
     Indication: ANALGESIC EFFECT
     Route: 048
  5. FERROUS SULFATE TAB [Concomitant]
     Indication: ANAEMIA
     Dosage: 400MG, FREQUENCY UNKNOWN
  6. TRAMADOL HCL [Concomitant]
     Indication: ANALGESIC EFFECT
     Route: 048
  7. FENTANYL [Concomitant]
     Indication: ANALGESIC EFFECT
     Route: 061
  8. AMITRIPTYLINE HCL [Concomitant]
     Route: 048
  9. OXYCODONE HCL [Concomitant]
     Indication: ANALGESIC EFFECT
     Dosage: 10-20MG, FREQUENCY UNKNOWN
     Route: 048
  10. MYCOPHENOLATE MOFETIL [Concomitant]
     Indication: ARTHRITIS
     Route: 048

REACTIONS (2)
  - NEURODERMATITIS [None]
  - SKIN ULCER [None]
